FAERS Safety Report 15365231 (Version 2)
Quarter: 2018Q4

REPORT INFORMATION
  Report Type: Spontaneous
  Country: JP (occurrence: JP)
  Receive Date: 20180910
  Receipt Date: 20181106
  Transmission Date: 20190204
  Serious: Yes (Life-Threatening, Hospitalization, Other)
  Sender: FDA-Public Use
  Company Number: JP-ACCORD-071365

PATIENT
  Age: 73 Year
  Sex: Female

DRUGS (3)
  1. ESCITALOPRAM [Suspect]
     Active Substance: ESCITALOPRAM OXALATE
     Indication: ANXIETY DISORDER
  2. LORAZEPAM. [Suspect]
     Active Substance: LORAZEPAM
     Indication: ANXIETY DISORDER
  3. EPINEPHRINE. [Suspect]
     Active Substance: EPINEPHRINE
     Indication: PRODUCT USE IN UNAPPROVED INDICATION
     Dosage: 3 I JECTIONS

REACTIONS (5)
  - Cardiogenic shock [Recovered/Resolved]
  - Left ventricle outflow tract obstruction [Recovered/Resolved]
  - Coma [Recovering/Resolving]
  - Pulseless electrical activity [Recovering/Resolving]
  - Haemolytic anaemia [Recovered/Resolved]
